FAERS Safety Report 4650032-3 (Version None)
Quarter: 2005Q2

REPORT INFORMATION
  Report Type: 
  Country: None (occurrence: None)
  Receive Date: 20050502
  Receipt Date: 20050316
  Transmission Date: 20051028
  Serious: Yes (Other)
  Sender: FDA-Public Use
  Company Number: JP-ROCHE-399611

PATIENT
  Age: 66 Year
  Sex: Female

DRUGS (9)
  1. PEGASYS [Suspect]
     Route: 058
     Dates: start: 20041102, end: 20050314
  2. PEGASYS [Suspect]
     Route: 058
     Dates: start: 20050407
  3. ALFAROL [Concomitant]
     Route: 048
  4. GASTER [Concomitant]
     Dosage: FORMULATION REPORTED AS ORAL (NOT OTHERWISE SPECIFIED).
     Route: 048
  5. GLAKAY [Concomitant]
     Dosage: FORMULATION REPORTED AS ORAL (NOT OTHERWISE SPECIFIED).
     Route: 048
  6. URSO 250 [Concomitant]
     Dosage: FORMULATION REPORTED AS ORAL (NOT OTHERWISE SPECIFIED).
     Route: 048
  7. AM [Concomitant]
     Dosage: FORMULATION REPORTED AS ORAL (NOT OTHERWISE SPECIFIED).
     Route: 048
  8. LASIX [Concomitant]
     Dosage: FORMULATION REPORTED AS ORAL (NOT OTHERWISE SPECIFIED).
     Route: 048
  9. MONILAC [Concomitant]
     Dosage: FORMULATION REPORTED AS ORAL (NOT OTHERWISE SPECIFIED).
     Route: 048

REACTIONS (6)
  - LICHEN PLANUS [None]
  - MUCOSAL EROSION [None]
  - MUCOSAL HAEMORRHAGE [None]
  - ORAL INTAKE REDUCED [None]
  - ORAL PAIN [None]
  - PRURITUS [None]
